FAERS Safety Report 24942102 (Version 2)
Quarter: 2025Q3

REPORT INFORMATION
  Report Type: Spontaneous
  Country: EU (occurrence: EU)
  Receive Date: 20250207
  Receipt Date: 20250813
  Transmission Date: 20251020
  Serious: Yes (Other)
  Sender: ELI LILLY AND COMPANY
  Company Number: EU-ELI_LILLY_AND_COMPANY-AT202501018058

PATIENT
  Age: 67 Year
  Sex: Female

DRUGS (3)
  1. OLUMIANT [Suspect]
     Active Substance: BARICITINIB
     Indication: Rheumatoid arthritis
     Route: 048
     Dates: start: 20240902
  2. OLUMIANT [Suspect]
     Active Substance: BARICITINIB
     Route: 048
     Dates: start: 20241227
  3. CORTISONE [Concomitant]
     Active Substance: CORTISONE
     Indication: Product used for unknown indication
     Route: 065

REACTIONS (7)
  - Graves^ disease [Not Recovered/Not Resolved]
  - Cardiac disorder [Not Recovered/Not Resolved]
  - Feeling abnormal [Not Recovered/Not Resolved]
  - Cystitis [Unknown]
  - Gastrointestinal disorder [Unknown]
  - White blood cells urine positive [Unknown]
  - Urine flow decreased [Unknown]

NARRATIVE: CASE EVENT DATE: 20241201
